FAERS Safety Report 6899169-9 (Version None)
Quarter: 2010Q3

REPORT INFORMATION
  Report Type: 
  Country: None (occurrence: None)
  Receive Date: 20100802
  Receipt Date: 20080130
  Transmission Date: 20110219
  Serious: No
  Sender: FDA-Public Use
  Company Number: US-PFIZER INC-2007094317

PATIENT
  Sex: Male
  Weight: 93.636 kg

DRUGS (6)
  1. LYRICA [Suspect]
     Indication: NEURALGIA
     Route: 048
     Dates: start: 20071016, end: 20071201
  2. ANTIHYPERTENSIVES [Concomitant]
  3. CADUET [Concomitant]
  4. ACETYLSALICYLIC ACID SRT [Concomitant]
  5. VALSARTAN [Concomitant]
  6. VALSARTAN [Concomitant]

REACTIONS (4)
  - BRADYPHRENIA [None]
  - DISTURBANCE IN ATTENTION [None]
  - EJACULATION DELAYED [None]
  - EYELID OEDEMA [None]
